FAERS Safety Report 22205137 (Version 2)
Quarter: 2023Q2

REPORT INFORMATION
  Report Type: Spontaneous
  Country: US (occurrence: US)
  Receive Date: 20230413
  Receipt Date: 20230502
  Transmission Date: 20230722
  Serious: Yes (Other)
  Sender: FDA-Public Use
  Company Number: US-002147023-NVSC2023US084070

PATIENT
  Age: 30 Year
  Sex: Female

DRUGS (1)
  1. VOTRIENT [Suspect]
     Active Substance: PAZOPANIB HYDROCHLORIDE
     Indication: Product used for unknown indication
     Dosage: 800 MG, QD
     Route: 048
     Dates: start: 202303

REACTIONS (7)
  - Neoplasm [Unknown]
  - Sensitive skin [Unknown]
  - Hair colour changes [Unknown]
  - Stomatitis [Unknown]
  - Skin discolouration [Unknown]
  - Nausea [Unknown]
  - Pain [Unknown]

NARRATIVE: CASE EVENT DATE: 20230320
